FAERS Safety Report 5531853-1 (Version None)
Quarter: 2007Q4

REPORT INFORMATION
  Report Type: 
  Country: None (occurrence: None)
  Receive Date: 20071203
  Receipt Date: 20071121
  Transmission Date: 20080405
  Serious: Yes (Death)
  Sender: FDA-Public Use
  Company Number: BR-ROCHE-533274

PATIENT
  Age: 61 Year
  Sex: Male
  Weight: 90 kg

DRUGS (2)
  1. XELODA [Suspect]
     Indication: COLON CANCER
     Dosage: STRENGTH AND FORM: 150 AND 500 MG DOSEFORMS.
     Route: 048
     Dates: start: 20061001, end: 20061201
  2. OXALIPLATIN [Concomitant]
     Indication: COLON CANCER
     Dates: start: 20061001, end: 20061201

REACTIONS (2)
  - RENAL FAILURE [None]
  - RESPIRATORY ARREST [None]
